FAERS Safety Report 21799378 (Version 1)
Quarter: 2022Q4

REPORT INFORMATION
  Report Type: Report from Study
  Country: US (occurrence: US)
  Receive Date: 20221230
  Receipt Date: 20221230
  Transmission Date: 20230113
  Serious: No
  Sender: FDA-Public Use
  Company Number: US-ABBVIE-22K-163-4519589-00

PATIENT
  Sex: Male
  Weight: 55.791 kg

DRUGS (2)
  1. CARBIDOPA\LEVODOPA [Suspect]
     Active Substance: CARBIDOPA\LEVODOPA
     Indication: Parkinson^s disease
     Dosage: DOSE WAS MINOR
     Route: 050
  2. CARBIDOPA\LEVODOPA [Suspect]
     Active Substance: CARBIDOPA\LEVODOPA

REACTIONS (6)
  - On and off phenomenon [Unknown]
  - Incorrect route of product administration [Not Recovered/Not Resolved]
  - Muscle rigidity [Unknown]
  - Incorrect route of product administration [Unknown]
  - Medication error [Unknown]
  - Freezing phenomenon [Not Recovered/Not Resolved]
